FAERS Safety Report 22969239 (Version 2)
Quarter: 2023Q4

REPORT INFORMATION
  Report Type: Spontaneous
  Country: US (occurrence: US)
  Receive Date: 20230922
  Receipt Date: 20231003
  Transmission Date: 20240110
  Serious: Yes (Death)
  Sender: FDA-Public Use
  Company Number: US-ALVOGEN-2023092280

PATIENT
  Sex: Male

DRUGS (1)
  1. GRALISE [Suspect]
     Active Substance: GABAPENTIN
     Indication: Polyneuropathy
     Dosage: PATIENT WAS TAKING 8 TABLETS (300 MG) A DAY.

REACTIONS (3)
  - Cardiovascular disorder [Fatal]
  - Hypertension [Fatal]
  - Off label use [Unknown]
